FAERS Safety Report 18062173 (Version 1)
Quarter: 2020Q3

REPORT INFORMATION
  Report Type: Spontaneous
  Country: PL (occurrence: PL)
  Receive Date: 20200724
  Receipt Date: 20200724
  Transmission Date: 20201103
  Serious: Yes (Other)
  Sender: FDA-Public Use
  Company Number: PL-TEVA-2020-PL-1803278

PATIENT
  Age: 58 Year
  Sex: Female
  Weight: 48 kg

DRUGS (4)
  1. 5?FLUOROURACIL [Suspect]
     Active Substance: FLUOROURACIL
     Indication: COLON CANCER
     Dosage: 568MG
     Route: 040
     Dates: start: 20180130, end: 20180327
  2. OXALIPLATINE [Suspect]
     Active Substance: OXALIPLATIN
     Indication: COLON CANCER
     Dosage: 120MG
     Route: 042
     Dates: start: 20180130, end: 20180327
  3. CALCII FOLINAS [Suspect]
     Active Substance: LEUCOVORIN
     Indication: COLON CANCER
     Dosage: 284 MG
     Route: 042
     Dates: start: 20180130, end: 20180327
  4. 5?FLUOROURACIL [Suspect]
     Active Substance: FLUOROURACIL
     Dosage: 852 MG
     Route: 041
     Dates: start: 20180130, end: 20180327

REACTIONS (1)
  - Neutropenia [Unknown]

NARRATIVE: CASE EVENT DATE: 20180410
